FAERS Safety Report 23989837 (Version 1)
Quarter: 2024Q2

REPORT INFORMATION
  Report Type: Spontaneous
  Country: FR (occurrence: FR)
  Receive Date: 20240619
  Receipt Date: 20240619
  Transmission Date: 20240716
  Serious: Yes (Other)
  Sender: FDA-Public Use
  Company Number: None

PATIENT
  Age: 85 Year
  Sex: Male
  Weight: 64 kg

DRUGS (4)
  1. RISPERIDONE [Suspect]
     Active Substance: RISPERIDONE
     Indication: Dementia Alzheimer^s type
     Dosage: 0.25 MG TWICE A DAY IF NECESSARY + 1 MG IF NECESSARY
     Route: 048
     Dates: start: 20240402
  2. RISPERIDONE [Suspect]
     Active Substance: RISPERIDONE
     Indication: Dementia Alzheimer^s type
     Dosage: 0.5 MG TWICE DAILY IF NEEDED
     Route: 048
     Dates: start: 20240205, end: 20240314
  3. RISPERIDONE [Suspect]
     Active Substance: RISPERIDONE
     Indication: Dementia Alzheimer^s type
     Dosage: 0.25 MG TWICE A DAY SYSTEMATICALLY + 1 MG IF NECESSARY
     Route: 048
     Dates: start: 20240320, end: 20240402
  4. RISPERIDONE [Suspect]
     Active Substance: RISPERIDONE
     Indication: Dementia Alzheimer^s type
     Dosage: 0.5 MG TWICE A DAY SYSTEMATICALLY + 1 MG IF NECESSARY
     Route: 048
     Dates: start: 20240314, end: 20240320

REACTIONS (2)
  - Hepatic cytolysis [Not Recovered/Not Resolved]
  - Cholestasis [Not Recovered/Not Resolved]

NARRATIVE: CASE EVENT DATE: 20240319
